FAERS Safety Report 4298507-3 (Version None)
Quarter: 2004Q1

REPORT INFORMATION
  Report Type: 
  Country: None (occurrence: None)
  Receive Date: 20040218
  Receipt Date: 20040210
  Transmission Date: 20041129
  Serious: Yes (Hospitalization)
  Sender: FDA-Public Use
  Company Number: PHBS2004IE02094

PATIENT
  Age: 44 Year
  Sex: Male

DRUGS (7)
  1. CLOZAPINE [Suspect]
     Indication: SCHIZOPHRENIA
     Dosage: 50 MG/D
     Route: 065
  2. CLOZAPINE [Suspect]
     Dosage: 300 MG/D
     Route: 065
  3. LOFEPRAMINE [Concomitant]
     Dosage: 210 MG/D
     Route: 065
  4. CLOPIXOL DEPOT [Concomitant]
     Dosage: UP TO 300 MG WEEKLY
  5. VENLAFAXINE HCL [Concomitant]
     Dosage: 150 MG/D
     Route: 065
  6. VENLAFAXINE HCL [Concomitant]
     Dosage: 225 MG/D
     Route: 065
  7. CITALOPRAM [Concomitant]
     Dosage: 20 MG/D
     Route: 065

REACTIONS (5)
  - BLOOD PRESSURE INCREASED [None]
  - ESSENTIAL HYPERTENSION [None]
  - NOREPINEPHRINE INCREASED [None]
  - PSEUDOPHAEOCHROMOCYTOMA [None]
  - TACHYCARDIA [None]
